FAERS Safety Report 9144702 (Version 2)
Quarter: 2013Q3

REPORT INFORMATION
  Report Type: Spontaneous
  Country: US (occurrence: US)
  Receive Date: 20130306
  Receipt Date: 20130717
  Transmission Date: 20140515
  Serious: Yes (Hospitalization, Other)
  Sender: FDA-Public Use
  Company Number: US-PFIZER INC-2013073050

PATIENT
  Age: 46 Year
  Sex: Male
  Weight: 50.34 kg

DRUGS (1)
  1. BENEFIX [Suspect]
     Indication: FACTOR IX DEFICIENCY
     Dosage: 100, UNK
     Route: 042

REACTIONS (2)
  - Haemorrhage [Unknown]
  - Disease complication [Unknown]
